FAERS Safety Report 7244552-5 (Version None)
Quarter: 2011Q1

REPORT INFORMATION
  Report Type: 
  Country: None (occurrence: None)
  Receive Date: 20110125
  Receipt Date: 20110114
  Transmission Date: 20110831
  Serious: Yes (Hospitalization)
  Sender: FDA-Public Use
  Company Number: IT-WATSON-2010-16291

PATIENT
  Age: 77 Year
  Sex: Male

DRUGS (2)
  1. COLCHICINE [Suspect]
     Indication: GOUTY ARTHRITIS
     Dosage: 1.0 MG, DAILY
  2. FLUVASTATIN [Suspect]
     Indication: CORONARY ARTERY DISEASE
     Dosage: 80 MG, DAILY

REACTIONS (2)
  - RHABDOMYOLYSIS [None]
  - DRUG INTERACTION [None]
